FAERS Safety Report 6680307-8 (Version None)
Quarter: 2010Q2

REPORT INFORMATION
  Report Type: 
  Country: None (occurrence: None)
  Receive Date: 20100409
  Receipt Date: 20100331
  Transmission Date: 20101027
  Serious: Yes (Disabling)
  Sender: FDA-Public Use
  Company Number: OSCN-NO-0908S-0400

PATIENT
  Age: 38 Year
  Sex: Female
  Weight: 65 kg

DRUGS (13)
  1. GADOLINIUM UNSPECIFIED [Suspect]
     Indication: PAIN IN EXTREMITY
     Dosage: SINGLE DOSE, I.V.
     Route: 042
     Dates: start: 20060407, end: 20060407
  2. GADOLINIUM UNSPECIFIED [Suspect]
     Indication: PARAESTHESIA
     Dosage: SINGLE DOSE, I.V.
     Route: 042
     Dates: start: 20060407, end: 20060407
  3. ERYTHROPOIETIN (NEORECORMON) [Concomitant]
  4. WARFARIN (MAREVAN) [Concomitant]
  5. PHENOXYMETHYLPENICILLIN (VEPICOMBIN) [Concomitant]
  6. ENALAPRIL (CORODIL) [Concomitant]
  7. IBUPROFEN (IPREN) [Concomitant]
  8. TRAMADOL (MANDOLGIN) [Concomitant]
  9. BUMETANIDE [Concomitant]
  10. SIMVASTATIN [Concomitant]
  11. NEXIUM [Concomitant]
  12. ASCORBIC ACID (C-VITAMIN) [Concomitant]
  13. FOLIC ACID [Concomitant]

REACTIONS (4)
  - BURNING SENSATION [None]
  - GAIT DISTURBANCE [None]
  - MUSCULOSKELETAL STIFFNESS [None]
  - NEPHROGENIC SYSTEMIC FIBROSIS [None]
